FAERS Safety Report 6632424-6 (Version None)
Quarter: 2010Q1

REPORT INFORMATION
  Report Type: 
  Country: None (occurrence: None)
  Receive Date: 20100312
  Receipt Date: 20090608
  Transmission Date: 20100710
  Serious: Yes (Hospitalization)
  Sender: FDA-Public Use
  Company Number: 2008BI027443

PATIENT
  Age: 24 Year
  Sex: Female
  Weight: 65 kg

DRUGS (1)
  1. AVONEX [Suspect]
     Indication: MULTIPLE SCLEROSIS
     Route: 030
     Dates: start: 20080328

REACTIONS (3)
  - NECK PAIN [None]
  - PAIN [None]
  - PAIN IN EXTREMITY [None]
